FAERS Safety Report 4709063-7 (Version None)
Quarter: 2005Q3

REPORT INFORMATION
  Report Type: 
  Country: None (occurrence: None)
  Receive Date: 20050707
  Receipt Date: 20050628
  Transmission Date: 20060218
  Serious: No
  Sender: FDA-Public Use
  Company Number: 215143

PATIENT
  Age: 52 Year
  Sex: Female
  Weight: 68 kg

DRUGS (5)
  1. XOLAIR [Suspect]
     Indication: ASTHMA
     Dosage: 375 Q2W, SUBCUTANEOUS
     Route: 058
     Dates: start: 20050203
  2. SINGULAIR [Concomitant]
  3. COUMADIN [Concomitant]
  4. PULMICORT [Concomitant]
  5. INHALED CORTICOSTEROID                  (CORTICOSTEROID NOS) [Concomitant]

REACTIONS (2)
  - ARTHRALGIA [None]
  - BURSITIS [None]
